FAERS Safety Report 10948524 (Version 1)
Quarter: 2015Q1

REPORT INFORMATION
  Report Type: Spontaneous
  Country: US (occurrence: None)
  Receive Date: 20150220
  Receipt Date: 20150220
  Transmission Date: 20150721
  Serious: No
  Sender: FDA-Public Use
  Company Number: 1000073534

PATIENT
  Age: 67 Year
  Sex: Female

DRUGS (7)
  1. TUDORZA PRESSAIR [Suspect]
     Active Substance: ACLIDINIUM BROMIDE
     Indication: DYSPNOEA
     Dates: start: 20140525, end: 20140525
  2. OMEPRAZOLE. [Suspect]
     Active Substance: OMEPRAZOLE
  3. ASPIRIN (ACETYLSALICYLIC ACID) [Suspect]
     Active Substance: ASPIRIN
  4. DIGOXIN. [Concomitant]
     Active Substance: DIGOXIN
  5. KLOR-CON [Suspect]
     Active Substance: POTASSIUM CHLORIDE
  6. DILT XR (DILTIAZEM HYDROCHLORIDE) [Suspect]
     Active Substance: DILTIAZEM HYDROCHLORIDE
  7. HYDROCHLOROTHIAZIDE. [Concomitant]
     Active Substance: HYDROCHLOROTHIAZIDE

REACTIONS (5)
  - Abdominal pain upper [None]
  - Gait disturbance [None]
  - Pain [None]
  - Cystitis [None]
  - Dysuria [None]

NARRATIVE: CASE EVENT DATE: 201405
